FAERS Safety Report 11418414 (Version 1)
Quarter: 2015Q3

REPORT INFORMATION
  Report Type: Spontaneous
  Country: US (occurrence: US)
  Receive Date: 20150826
  Receipt Date: 20150826
  Transmission Date: 20151125
  Serious: No
  Sender: FDA-Public Use
  Company Number: US-NOVEN PHARMACEUTICALS, INC.-US2015000331

PATIENT
  Age: 53 Year
  Sex: Female

DRUGS (3)
  1. ESTRADIOL. [Suspect]
     Active Substance: ESTRADIOL
     Indication: NIGHT SWEATS
  2. ESTRADIOL. [Suspect]
     Active Substance: ESTRADIOL
     Indication: HOT FLUSH
     Dosage: UNK
     Route: 062
     Dates: start: 2010, end: 2010
  3. PROGESTERONE. [Concomitant]
     Active Substance: PROGESTERONE
     Dosage: UNK, BID

REACTIONS (6)
  - Application site rash [Unknown]
  - Product adhesion issue [Unknown]
  - Acne [Unknown]
  - Application site erythema [Unknown]
  - Ill-defined disorder [Unknown]
  - Application site reaction [Unknown]

NARRATIVE: CASE EVENT DATE: 2010
